FAERS Safety Report 7209854-7 (Version None)
Quarter: 2011Q1

REPORT INFORMATION
  Report Type: 
  Country: None (occurrence: None)
  Receive Date: 20110104
  Receipt Date: 20101213
  Transmission Date: 20110831
  Serious: Yes (Other)
  Sender: FDA-Public Use
  Company Number: US-BAYER-2010-008523

PATIENT

DRUGS (1)
  1. MAGNEVIST [Suspect]
     Dosage: UNK
     Dates: start: 20101210

REACTIONS (3)
  - ERYTHEMA [None]
  - URTICARIA [None]
  - PRURITUS [None]
